FAERS Safety Report 5621632-9 (Version None)
Quarter: 2008Q1

REPORT INFORMATION
  Report Type: 
  Country: None (occurrence: None)
  Receive Date: 20080211
  Receipt Date: 20080128
  Transmission Date: 20080703
  Serious: Yes (Hospitalization, Other)
  Sender: FDA-Public Use
  Company Number: US-AMGEN-STX254780

PATIENT
  Sex: Female
  Weight: 63 kg

DRUGS (17)
  1. ENBREL [Suspect]
     Indication: RHEUMATOID ARTHRITIS
     Route: 058
     Dates: start: 19981201
  2. PREDNISONE TAB [Suspect]
     Route: 065
     Dates: start: 20050101
  3. UNSPECIFIED INHALER [Concomitant]
  4. RITUXAN [Concomitant]
     Route: 065
  5. HUMIRA [Concomitant]
     Route: 065
     Dates: start: 20060301, end: 20060501
  6. ORENCIA [Concomitant]
     Route: 065
     Dates: start: 20060801, end: 20061001
  7. PLAQUENIL [Concomitant]
     Route: 065
  8. CELEBREX [Concomitant]
     Route: 065
     Dates: start: 20050101
  9. NEURONTIN [Concomitant]
     Route: 065
     Dates: start: 20050101
  10. ALLEGRA [Concomitant]
     Route: 065
     Dates: start: 20050107
  11. NORVASC [Concomitant]
     Route: 065
     Dates: start: 20050101
  12. NEXIUM [Concomitant]
     Route: 065
     Dates: start: 20070801
  13. CARAFATE [Concomitant]
     Route: 065
  14. NASAL PREPARATIONS [Concomitant]
     Route: 045
  15. NASACORT [Concomitant]
     Route: 045
  16. RESTASIS [Concomitant]
     Route: 047
  17. XOPENEX [Concomitant]
     Route: 050

REACTIONS (24)
  - ASTHMA [None]
  - DEHYDRATION [None]
  - DIZZINESS [None]
  - DYSPEPSIA [None]
  - FLUSHING [None]
  - GASTRIC DISORDER [None]
  - GASTRITIS [None]
  - GASTROOESOPHAGEAL REFLUX DISEASE [None]
  - HEADACHE [None]
  - HYPERSENSITIVITY [None]
  - HYPOAESTHESIA [None]
  - INTERSTITIAL LUNG DISEASE [None]
  - IRRITABLE BOWEL SYNDROME [None]
  - NAUSEA [None]
  - ORAL CANDIDIASIS [None]
  - PARAESTHESIA [None]
  - PLEURISY [None]
  - RESPIRATORY TRACT INFECTION [None]
  - RETINAL DEGENERATION [None]
  - RHEUMATOID ARTHRITIS [None]
  - SENSATION OF HEAVINESS [None]
  - SPINAL NERVE STIMULATOR IMPLANTATION [None]
  - VIRAL UPPER RESPIRATORY TRACT INFECTION [None]
  - VOMITING [None]
